FAERS Safety Report 12508617 (Version 1)
Quarter: 2016Q2

REPORT INFORMATION
  Report Type: Spontaneous
  Country: US (occurrence: US)
  Receive Date: 20160629
  Receipt Date: 20160629
  Transmission Date: 20160815
  Serious: Yes (Hospitalization)
  Sender: FDA-Public Use
  Company Number: US-MYLANLABS-2016M1026859

PATIENT

DRUGS (1)
  1. BACLOFEN. [Suspect]
     Active Substance: BACLOFEN
     Indication: MUSCLE SPASMS
     Route: 048

REACTIONS (5)
  - Perseveration [Recovering/Resolving]
  - Neurotoxicity [Recovering/Resolving]
  - Disorientation [Recovering/Resolving]
  - Aphasia [Recovering/Resolving]
  - Mental status changes [Recovering/Resolving]
